FAERS Safety Report 26191750 (Version 1)
Quarter: 2025Q4

REPORT INFORMATION
  Report Type: Spontaneous
  Country: US (occurrence: US)
  Receive Date: 20251223
  Receipt Date: 20251223
  Transmission Date: 20260118
  Serious: Yes (Other)
  Sender: AMGEN
  Company Number: US-AMGEN-USASP2025249688

PATIENT
  Age: 58 Year
  Sex: Male

DRUGS (13)
  1. REPATHA [Suspect]
     Active Substance: EVOLOCUMAB
     Indication: Product used for unknown indication
     Dosage: 140 MILLIGRAM, Q2WK
     Route: 058
  2. AZELASTINE [Concomitant]
     Active Substance: AZELASTINE
     Dosage: 137 MICROGRAM PER INHALATION
  3. FLUTICASONE FUROATE\UMECLIDINIUM BROMIDE\VILANTEROL TRIFENATATE [Concomitant]
     Active Substance: FLUTICASONE FUROATE\UMECLIDINIUM BROMIDE\VILANTEROL TRIFENATATE
     Dosage: 100MCG/52.5 MCG/25MCG PER INHALATION, 1 PUFF INHALATION DAILY
  4. HUMALOG [Concomitant]
     Active Substance: INSULIN LISPRO
     Dosage: UNK UNK, TID, 7-10 UNITS
     Route: 058
  5. KLONOPIN [Concomitant]
     Active Substance: CLONAZEPAM
     Dosage: 25 MILLIGRAM, BID
  6. LEXISCAN [Concomitant]
     Active Substance: REGADENOSON
     Dosage: 4 MILLIGRAM ONCE
     Route: 040
  7. OMEPRAZOLE [Concomitant]
     Active Substance: OMEPRAZOLE
     Dosage: 20 MILLIGRAM, QD
     Route: 048
  8. PEPCID [Concomitant]
     Active Substance: FAMOTIDINE
     Dosage: 20 MILLIGRAM, BID
  9. REMERON [Concomitant]
     Active Substance: MIRTAZAPINE
     Dosage: 7.5 MILLIGRAM AT HOUR OF SLEEP
     Route: 048
  10. SODIUM CHLORIDE [Concomitant]
     Active Substance: SODIUM CHLORIDE
     Dosage: UNK, 9 PERCENT FLUSH, 10 ML IV PUCH ONCE
     Route: 040
  11. TRESIBA [Concomitant]
     Active Substance: INSULIN DEGLUDEC
     Dosage: UNK, 100 UNIT/ML, 18 UNITS SUBCUTANEOUS EVERY MORNING
     Route: 058
  12. PHENERGAN [Concomitant]
     Active Substance: PROMETHAZINE HYDROCHLORIDE
     Dosage: 12.5 ORAL
     Route: 048
  13. ZYRTEC [Concomitant]
     Active Substance: CETIRIZINE HYDROCHLORIDE
     Dosage: 10 MILLIGRAM, BID
     Route: 048

REACTIONS (16)
  - Seizure [Unknown]
  - Type 2 diabetes mellitus [Unknown]
  - Systemic lupus erythematosus [Unknown]
  - Wolff-Parkinson-White syndrome [Unknown]
  - Cardiac assistance device user [Unknown]
  - Impaired gastric emptying [Unknown]
  - Dyspnoea [Not Recovered/Not Resolved]
  - COVID-19 [Unknown]
  - Connective tissue disorder [Unknown]
  - Anxiety [Unknown]
  - Bradycardia [Unknown]
  - Coronary artery disease [Unknown]
  - Conversion disorder [Unknown]
  - Insomnia [Unknown]
  - Bundle branch block left [Unknown]
  - Nodule [Unknown]

NARRATIVE: CASE EVENT DATE: 20200101
